FAERS Safety Report 20722617 (Version 3)
Quarter: 2022Q3

REPORT INFORMATION
  Report Type: Report from Study
  Country: AU (occurrence: AU)
  Receive Date: 20220419
  Receipt Date: 20220803
  Transmission Date: 20221027
  Serious: Yes (Death, Life-Threatening, Hospitalization, Other)
  Sender: FDA-Public Use
  Company Number: AU-BRISTOL-MYERS SQUIBB COMPANY-BMS-2021-133151

PATIENT
  Age: 64 Year
  Sex: Male
  Weight: 90 kg

DRUGS (31)
  1. NIVOLUMAB [Suspect]
     Active Substance: NIVOLUMAB
     Indication: Non-small cell lung cancer
     Route: 042
     Dates: start: 20211011, end: 20211129
  2. CARBOPLATIN [Suspect]
     Active Substance: CARBOPLATIN
     Indication: Non-small cell lung cancer
     Dosage: 540 MG ON 29-NOV-2021
     Route: 065
     Dates: start: 20211011, end: 20211129
  3. PEMETREXED DISODIUM [Suspect]
     Active Substance: PEMETREXED DISODIUM
     Indication: Non-small cell lung cancer
     Dosage: 735 MG ON 29-NOV-2021
     Route: 065
     Dates: start: 20211011, end: 20211129
  4. DEXAMETHASONE [Concomitant]
     Active Substance: DEXAMETHASONE
     Indication: Non-small cell lung cancer
     Dosage: BD; TWICE PER DAY
     Route: 048
     Dates: start: 20211128, end: 20211130
  5. NALOXONE HYDROCHLORIDE\OXYCODONE HYDROCHLORIDE [Concomitant]
     Active Substance: NALOXONE HYDROCHLORIDE\OXYCODONE HYDROCHLORIDE
     Indication: Rib fracture
     Dosage: DAILY; PER DAY
     Route: 048
     Dates: start: 20210727
  6. NALOXONE HYDROCHLORIDE\OXYCODONE HYDROCHLORIDE [Concomitant]
     Active Substance: NALOXONE HYDROCHLORIDE\OXYCODONE HYDROCHLORIDE
     Dosage: BD; TWICE PER DAY
     Route: 048
     Dates: start: 20211029
  7. OXYCODONE HYDROCHLORIDE [Concomitant]
     Active Substance: OXYCODONE HYDROCHLORIDE
     Indication: Rib fracture
     Dosage: AS NEEDED
     Route: 048
     Dates: start: 20211029
  8. SELENIUM [Concomitant]
     Active Substance: SELENIUM
     Indication: Product used for unknown indication
     Dosage: DAILY; PER DAY
     Route: 048
     Dates: start: 20210819, end: 20211203
  9. FOLIC ACID [Concomitant]
     Active Substance: FOLIC ACID
     Indication: Product used for unknown indication
     Dosage: DAILY; PER DAY
     Route: 048
     Dates: start: 20210927, end: 20211202
  10. LORATADINE [Concomitant]
     Active Substance: LORATADINE
     Indication: Product used for unknown indication
     Dosage: EVERY 24 HOURS
     Route: 048
     Dates: start: 20211202, end: 20211209
  11. METOPROLOL [Concomitant]
     Active Substance: METOPROLOL
     Indication: Product used for unknown indication
     Dosage: BD; TWICE PER DAY
     Route: 048
     Dates: start: 20211124
  12. METOPROLOL [Concomitant]
     Active Substance: METOPROLOL
     Dosage: 50 MILLIGRAM, BID
     Route: 048
     Dates: start: 20211119, end: 20211123
  13. ENOXAPARIN [Concomitant]
     Active Substance: ENOXAPARIN
     Indication: Product used for unknown indication
     Dosage: DAILY; PER DAY
     Route: 058
     Dates: start: 20211202, end: 20211208
  14. TIOTROPIUM [Concomitant]
     Active Substance: TIOTROPIUM
     Indication: Product used for unknown indication
     Dosage: DAILY; PER DAY
     Route: 055
     Dates: start: 2021
  15. TIOTROPIUM [Concomitant]
     Active Substance: TIOTROPIUM
     Dosage: 2.5 MICROGRAM, QD
     Route: 055
     Dates: start: 2021
  16. PALONOSETRON [Concomitant]
     Active Substance: PALONOSETRON
     Indication: Product used for unknown indication
     Dosage: ONCE
     Route: 048
     Dates: start: 20211129, end: 20211129
  17. NETUPITANT [Concomitant]
     Active Substance: NETUPITANT
     Indication: Product used for unknown indication
     Dosage: ONCE
     Route: 048
     Dates: start: 20211129, end: 20211129
  18. ALBUTEROL [Concomitant]
     Active Substance: ALBUTEROL
     Indication: Product used for unknown indication
     Dosage: 100 MICROGRAM, AS NEEDED
     Route: 055
     Dates: start: 2021
  19. NICOTINE [Concomitant]
     Active Substance: NICOTINE
     Indication: Product used for unknown indication
     Dosage: DAILY; PER DAY
     Route: 062
     Dates: start: 20210819
  20. CALCIUM CARBONATE [Concomitant]
     Active Substance: CALCIUM CARBONATE
     Indication: Product used for unknown indication
     Dosage: AS NEEDED
     Route: 048
     Dates: start: 20211014
  21. ATORVASTATIN [Concomitant]
     Active Substance: ATORVASTATIN
     Indication: Product used for unknown indication
     Dosage: DAILY; PER DAY
     Route: 048
     Dates: start: 2021, end: 20211207
  22. MOVICOL [Concomitant]
     Active Substance: POLYETHYLENE GLYCOL 3350\POTASSIUM CHLORIDE\SODIUM BICARBONATE\SODIUM CHLORIDE
     Indication: Product used for unknown indication
     Dosage: AS NEEDED
     Route: 048
     Dates: start: 20210819
  23. KENALOG [Concomitant]
     Active Substance: TRIAMCINOLONE ACETONIDE
     Indication: Product used for unknown indication
     Dosage: 1 DF= 1 UNIT NOS ?3 TIMES PER DAY
     Route: 061
     Dates: start: 20211108, end: 20211126
  24. BETAMETHASONE [Concomitant]
     Active Substance: BETAMETHASONE
     Indication: Product used for unknown indication
     Dosage: 1 DF= 1 UNIT NOS AS NEEDED
     Route: 061
     Dates: start: 20211108, end: 20211201
  25. GLYCEROL TINITRATE [Concomitant]
     Indication: Product used for unknown indication
     Dosage: AS NEEDED
     Route: 055
     Dates: start: 2018
  26. ASPIRIN [Concomitant]
     Active Substance: ASPIRIN
     Indication: Product used for unknown indication
     Dosage: 100 MILLIGRAM, QD
     Route: 048
     Dates: start: 20180101
  27. OXYCODONE [Concomitant]
     Active Substance: OXYCODONE
     Indication: Product used for unknown indication
     Dosage: 5 MILLIGRAM, AS NEEDED
     Route: 048
     Dates: start: 20210727
  28. ASEA REDOX [Concomitant]
     Indication: Product used for unknown indication
     Dosage: 1 DOSAGE FORM= 35 UNITS NOS, QD
     Route: 048
     Dates: start: 20211022, end: 20211203
  29. RAMIPRIL [Concomitant]
     Active Substance: RAMIPRIL
     Indication: Product used for unknown indication
     Dosage: 10 MILLIGRAM, QD
     Route: 048
     Dates: start: 20211119, end: 20211123
  30. NITROGLYCERIN [Concomitant]
     Active Substance: NITROGLYCERIN
     Indication: Product used for unknown indication
     Dosage: 400 MICROGRAM, AS NEEDED
     Route: 055
     Dates: start: 2018
  31. NILSTAT [Concomitant]
     Active Substance: NYSTATIN
     Indication: Product used for unknown indication
     Dosage: 1 DOSAGE FORM=1 UNIT NOS, 4 TIMES PER DAY
     Route: 048
     Dates: start: 20211202

REACTIONS (5)
  - Febrile neutropenia [Not Recovered/Not Resolved]
  - Intestinal ischaemia [Fatal]
  - Rash [Not Recovered/Not Resolved]
  - Lower respiratory tract infection [Not Recovered/Not Resolved]
  - Sepsis [Not Recovered/Not Resolved]

NARRATIVE: CASE EVENT DATE: 20211202
